FAERS Safety Report 21918971 (Version 1)
Quarter: 2023Q1

REPORT INFORMATION
  Report Type: Spontaneous
  Country: US (occurrence: US)
  Receive Date: 20230127
  Receipt Date: 20230127
  Transmission Date: 20230418
  Serious: Yes (Hospitalization)
  Sender: FDA-Public Use
  Company Number: US-UNITED THERAPEUTICS-UNT-2023-001974

PATIENT
  Age: 62 Year
  Sex: Male

DRUGS (21)
  1. REMODULIN [Suspect]
     Active Substance: TREPROSTINIL
     Indication: Pulmonary arterial hypertension
     Dosage: 0.012 ?G/KG, CONTINUING
     Route: 041
     Dates: start: 202212, end: 202212
  2. REMODULIN [Suspect]
     Active Substance: TREPROSTINIL
     Dosage: 0.020 ?G/KG, CONTINUING
     Route: 041
     Dates: start: 202212, end: 202212
  3. REMODULIN [Suspect]
     Active Substance: TREPROSTINIL
     Dosage: 0.004 ?G/KG, CONTINUING
     Route: 041
     Dates: start: 202212
  4. REMODULIN [Suspect]
     Active Substance: TREPROSTINIL
     Dosage: UNK, CONTINUING
     Route: 041
     Dates: start: 202212
  5. VELETRI [Suspect]
     Active Substance: EPOPROSTENOL
     Indication: Pulmonary arterial hypertension
     Dosage: 12096 NG/KG, (8.4 NG/KG, 1 TIME EVERY 1 MINUTE)
     Route: 041
     Dates: start: 20220811, end: 202208
  6. VELETRI [Suspect]
     Active Substance: EPOPROSTENOL
     Dosage: 12960 NG/KG (9 NG/KG, 1 TIME EVERY 1 MINUTE)
     Route: 041
     Dates: start: 2022, end: 2022
  7. VELETRI [Suspect]
     Active Substance: EPOPROSTENOL
     Dosage: 12096 NG/KG (7.28 NG/KG, 1 TIME EVERY 1 MINUTE AT PUMP RATE AT 65 ML/24HR)
     Route: 041
     Dates: start: 202208, end: 2022
  8. VELETRI [Suspect]
     Active Substance: EPOPROSTENOL
     Dosage: UNK (DECREASED DOSE)
     Route: 041
     Dates: start: 20221031, end: 2022
  9. VELETRI [Suspect]
     Active Substance: EPOPROSTENOL
     Dosage: 10080 NG/KG (7 NG/KG, 1 TIME EVERY 1 MINUTE)
     Route: 041
     Dates: start: 20221111, end: 2022
  10. VELETRI [Suspect]
     Active Substance: EPOPROSTENOL
     Dosage: 7.953 NG/KG/MIN (PUMP RATE 71ML/ 24HR)
     Route: 041
     Dates: start: 2022, end: 2022
  11. VELETRI [Suspect]
     Active Substance: EPOPROSTENOL
     Dosage: 4320 NG/KG (3 NG/KG, 1 TIME EVERY 1 MINUTE)
     Route: 041
     Dates: start: 202212, end: 202212
  12. VELETRI [Suspect]
     Active Substance: EPOPROSTENOL
     Dosage: 4320 NG/KG (7 NG/KG, 1 TIME EVERY 1 MINUTE)
     Route: 041
     Dates: start: 202207, end: 2022
  13. VELETRI [Suspect]
     Active Substance: EPOPROSTENOL
     Dosage: UNK
     Route: 041
  14. VELETRI [Suspect]
     Active Substance: EPOPROSTENOL
     Dosage: UNK
     Route: 041
  15. VELETRI [Suspect]
     Active Substance: EPOPROSTENOL
     Dosage: UNK
     Route: 041
  16. GABAPENTIN [Concomitant]
     Active Substance: GABAPENTIN
     Indication: Arthralgia
     Route: 065
  17. GABAPENTIN [Concomitant]
     Active Substance: GABAPENTIN
     Indication: Back pain
  18. TYLENOL [Concomitant]
     Active Substance: ACETAMINOPHEN
     Indication: Arthralgia
     Route: 065
  19. TYLENOL [Concomitant]
     Active Substance: ACETAMINOPHEN
     Indication: Back pain
  20. HYDROCODONE [Concomitant]
     Active Substance: HYDROCODONE
     Indication: Arthralgia
     Route: 065
  21. HYDROCODONE [Concomitant]
     Active Substance: HYDROCODONE
     Indication: Back pain

REACTIONS (4)
  - Hypertension [Unknown]
  - Arthralgia [Not Recovered/Not Resolved]
  - Pain in extremity [Not Recovered/Not Resolved]
  - Spinal pain [Not Recovered/Not Resolved]

NARRATIVE: CASE EVENT DATE: 20221201
